FAERS Safety Report 17255792 (Version 1)
Quarter: 2020Q1

REPORT INFORMATION
  Report Type: Spontaneous
  Country: US (occurrence: US)
  Receive Date: 20200110
  Receipt Date: 20200110
  Transmission Date: 20200409
  Serious: Yes (Hospitalization)
  Sender: FDA-Public Use
  Company Number: US-EMCURE PHARMACEUTICALS LTD-2019-EPL-1304

PATIENT
  Age: 79 Year
  Sex: Female
  Weight: 59 kg

DRUGS (2)
  1. VANCOMYCIN HYDROCHLORIDE. [Suspect]
     Active Substance: VANCOMYCIN HYDROCHLORIDE
     Indication: DEVICE RELATED INFECTION
     Dosage: 1 GRAM, BID
     Route: 042
  2. VANCOMYCIN HYDROCHLORIDE. [Suspect]
     Active Substance: VANCOMYCIN HYDROCHLORIDE
     Indication: STAPHYLOCOCCAL BACTERAEMIA

REACTIONS (3)
  - Nephropathy toxic [Recovered/Resolved]
  - Tubulointerstitial nephritis [Recovered/Resolved]
  - Renal tubular necrosis [Recovered/Resolved]
